FAERS Safety Report 12839557 (Version 1)
Quarter: 2016Q4

REPORT INFORMATION
  Report Type: Spontaneous
  Country: US (occurrence: US)
  Receive Date: 20161011
  Receipt Date: 20161011
  Transmission Date: 20170207
  Serious: Yes (Other)
  Sender: FDA-Public Use
  Company Number: None

PATIENT
  Age: 26 Year
  Sex: Female

DRUGS (3)
  1. PRENATAL VITAMINS [Concomitant]
     Active Substance: VITAMINS
  2. MAKENA [Suspect]
     Active Substance: HYDROXYPROGESTERONE CAPROATE
     Indication: POSTPONEMENT OF PRETERM DELIVERY
     Dosage: ?          OTHER FREQUENCY:ONCE WEEKLY;?
     Route: 030
     Dates: start: 20160812, end: 20161010
  3. ONDANSETRON [Concomitant]
     Active Substance: ONDANSETRON

REACTIONS (1)
  - Burning sensation [None]

NARRATIVE: CASE EVENT DATE: 20161010
